FAERS Safety Report 8201921-4 (Version None)
Quarter: 2012Q1

REPORT INFORMATION
  Report Type: 
  Country: None (occurrence: None)
  Receive Date: 20120312
  Receipt Date: 20120302
  Transmission Date: 20120608
  Serious: Yes (Other)
  Sender: FDA-Public Use
  Company Number: JP-VERTEX PHARMACEUTICALS INC.-AE-2012-001805

PATIENT
  Age: 33 Year
  Sex: Male

DRUGS (5)
  1. TELAVIC (TELAPREVIR) [Suspect]
     Indication: HEPATITIS C
     Route: 048
     Dates: start: 20120120
  2. PEGINTERFERON ALFA-2B [Concomitant]
     Dates: start: 20120216
  3. PEGINTERFERON ALFA-2B [Concomitant]
     Indication: HEPATITIS C
     Dates: start: 20120120, end: 20120125
  4. PEGINTERFERON ALFA-2B [Concomitant]
     Dates: start: 20120125, end: 20120216
  5. RIBAVIRIN [Concomitant]
     Indication: HEPATITIS C
     Dates: start: 20120220

REACTIONS (4)
  - ERYTHEMA [None]
  - NEUTROPHIL COUNT DECREASED [None]
  - DYSPEPSIA [None]
  - BLOOD URIC ACID INCREASED [None]
